FAERS Safety Report 14179319 (Version 1)
Quarter: 2017Q4

REPORT INFORMATION
  Report Type: Report from Study
  Country: GB (occurrence: GB)
  Receive Date: 20171110
  Receipt Date: 20171110
  Transmission Date: 20180321
  Serious: Yes (Other)
  Sender: FDA-Public Use
  Company Number: GB-JNJFOC-20171106668

PATIENT
  Sex: Male

DRUGS (1)
  1. STELARA [Suspect]
     Active Substance: USTEKINUMAB
     Indication: PSORIASIS
     Route: 058

REACTIONS (5)
  - Epilepsy [Unknown]
  - Head injury [Unknown]
  - Hand fracture [Unknown]
  - Eyelid injury [Unknown]
  - Fall [Unknown]

NARRATIVE: CASE EVENT DATE: 2017
